FAERS Safety Report 7391763-4 (Version None)
Quarter: 2011Q2

REPORT INFORMATION
  Report Type: 
  Country: None (occurrence: None)
  Receive Date: 20110404
  Receipt Date: 20110401
  Transmission Date: 20111010
  Serious: Yes (Hospitalization)
  Sender: FDA-Public Use
  Company Number: SE-AMGEN-QUU437939

PATIENT
  Age: 61 Year
  Sex: Female
  Weight: 83 kg

DRUGS (11)
  1. BECLOMETASONE DIPROPIONATE [Concomitant]
     Dosage: 250 MG, BID
     Dates: start: 19980101
  2. MONTELUKAST SODIUM [Concomitant]
     Dosage: 10 MG, QD
     Dates: start: 19990101
  3. LORATADINE [Concomitant]
     Dosage: 10 MG, QD
     Dates: start: 19980101
  4. CALCIUM [Concomitant]
     Dosage: UNK UNK, UNK
     Dates: start: 19950101
  5. UNSPECIFIED MEDICATION [Concomitant]
  6. PARACETAMOL [Concomitant]
     Dosage: 500 MG, UNK
     Dates: start: 19900101
  7. ESOMEPRAZOLE [Concomitant]
     Dosage: 20 MG, QD
     Dates: start: 20050101
  8. EPINEPHRINE [Concomitant]
  9. PROLIA [Suspect]
     Indication: OSTEOPOROSIS
     Dosage: 60 MG, UNK
     Route: 058
     Dates: start: 20100616
  10. TRAMADOL [Concomitant]
     Dosage: 50 MG, BID
     Dates: start: 19900101
  11. ERGOCALCIFEROL [Concomitant]

REACTIONS (11)
  - ACTIVITIES OF DAILY LIVING IMPAIRED [None]
  - FATIGUE [None]
  - ELECTROCARDIOGRAM ABNORMAL [None]
  - ASTHMA [None]
  - BACK PAIN [None]
  - CHEST PAIN [None]
  - CHEST DISCOMFORT [None]
  - MALAISE [None]
  - NASOPHARYNGITIS [None]
  - DYSPNOEA [None]
  - MUSCLE SPASMS [None]
